FAERS Safety Report 11533072 (Version 1)
Quarter: 2015Q3

REPORT INFORMATION
  Report Type: Spontaneous
  Country: BR (occurrence: BR)
  Receive Date: 20150921
  Receipt Date: 20150921
  Transmission Date: 20151125
  Serious: Yes (Disabling)
  Sender: FDA-Public Use
  Company Number: BR-009507513-1509BRA008998

PATIENT
  Sex: Female
  Weight: 92 kg

DRUGS (1)
  1. NUVARING [Suspect]
     Active Substance: ETHINYL ESTRADIOL\ETONOGESTREL
     Indication: CONTRACEPTION
     Dosage: 3 WEEKS OF USE AND 1 WEEK PAUSE
     Route: 067
     Dates: start: 2013

REACTIONS (8)
  - Device difficult to use [Recovered/Resolved]
  - Incorrect drug administration duration [Unknown]
  - Supernumerary teeth [Recovered/Resolved]
  - Vulvovaginal discomfort [Recovered/Resolved]
  - Product physical issue [Unknown]
  - Gingival cyst [Recovered/Resolved]
  - Migraine [Recovering/Resolving]
  - Device breakage [Unknown]

NARRATIVE: CASE EVENT DATE: 201403
